FAERS Safety Report 6440236-1 (Version None)
Quarter: 2009Q4

REPORT INFORMATION
  Report Type: 
  Country: None (occurrence: None)
  Receive Date: 20091113
  Receipt Date: 20091105
  Transmission Date: 20100525
  Serious: Yes (Life-Threatening, Hospitalization)
  Sender: FDA-Public Use
  Company Number: FR-PFIZER INC-2009290191

PATIENT
  Age: 77 Year
  Sex: Female

DRUGS (5)
  1. TAHOR [Suspect]
     Dosage: UNK
     Route: 048
     Dates: start: 20090724, end: 20090821
  2. KARDEGIC [Concomitant]
     Dosage: UNK
  3. PLAVIX [Concomitant]
     Dosage: UNK
     Dates: start: 20090724
  4. TRIATEC [Concomitant]
     Dosage: UNK
     Dates: start: 20090724
  5. TENORMIN [Concomitant]
     Dosage: UNK
     Dates: start: 20090724

REACTIONS (1)
  - HEPATITIS CHOLESTATIC [None]
